FAERS Safety Report 25935523 (Version 1)
Quarter: 2025Q4

REPORT INFORMATION
  Report Type: Spontaneous
  Country: US (occurrence: US)
  Receive Date: 20251017
  Receipt Date: 20251017
  Transmission Date: 20260118
  Serious: No
  Sender: SANOFI AVENTIS
  Company Number: US-SA-2025SA309222

PATIENT
  Age: 64 Year

DRUGS (1)
  1. LANTUS [Suspect]
     Active Substance: INSULIN GLARGINE
     Indication: Blood glucose increased
     Dosage: 65U AM 70U PM, BID
     Route: 058

REACTIONS (1)
  - Off label use [Unknown]
